FAERS Safety Report 12880358 (Version 1)
Quarter: 2016Q4

REPORT INFORMATION
  Report Type: Spontaneous
  Country: US (occurrence: US)
  Receive Date: 20161024
  Receipt Date: 20161024
  Transmission Date: 20170207
  Serious: Yes (Other)
  Sender: FDA-Public Use
  Company Number: None

PATIENT
  Age: 72 Year
  Sex: Female
  Weight: 74.25 kg

DRUGS (3)
  1. EYE DROP [Concomitant]
     Active Substance: UNSPECIFIED INGREDIENT
  2. MESS FOR DIABETES HIGH CHOLESTEROL AND HIGH BLOOD PRESSURE [Concomitant]
  3. DUREZOL [Suspect]
     Active Substance: DIFLUPREDNATE
     Indication: PRODUCT USED FOR UNKNOWN INDICATION
     Route: 047

REACTIONS (1)
  - Amnesia [None]

NARRATIVE: CASE EVENT DATE: 20160905
